FAERS Safety Report 4429890-3 (Version None)
Quarter: 2004Q3

REPORT INFORMATION
  Report Type: 
  Country: None (occurrence: None)
  Receive Date: 20040817
  Receipt Date: 20040804
  Transmission Date: 20050211
  Serious: Yes (Life-Threatening, Hospitalization, Other)
  Sender: FDA-Public Use
  Company Number: 2004053222

PATIENT
  Age: 34 Year
  Sex: Female

DRUGS (3)
  1. NEURONTIN [Suspect]
     Indication: ILL-DEFINED DISORDER
     Dosage: 150 MG (300 MG), ORAL
     Route: 048
  2. TEMAZEPAM [Suspect]
     Indication: ILL-DEFINED DISORDER
     Dosage: ORAL
     Route: 048
  3. PAROXETINE HCL [Concomitant]

REACTIONS (1)
  - INTENTIONAL OVERDOSE [None]
